FAERS Safety Report 14207591 (Version 1)
Quarter: 2017Q4

REPORT INFORMATION
  Report Type: Spontaneous
  Country: US (occurrence: US)
  Receive Date: 20171121
  Receipt Date: 20171121
  Transmission Date: 20180321
  Serious: No
  Sender: FDA-Public Use
  Company Number: US-JNJFOC-20171015470

PATIENT
  Sex: Female
  Weight: 118 kg

DRUGS (19)
  1. PROAIR HFA [Concomitant]
     Active Substance: ALBUTEROL SULFATE
  2. CHONDROITIN SULFATE W/GLUCOSAMINE SULFATE [Concomitant]
  3. DIGOXIN. [Concomitant]
     Active Substance: DIGOXIN
  4. RANITIDINE. [Concomitant]
     Active Substance: RANITIDINE
  5. FLOVENT [Concomitant]
     Active Substance: FLUTICASONE PROPIONATE
  6. POTASSIUM CHLORIDE. [Concomitant]
     Active Substance: POTASSIUM CHLORIDE
  7. ASPIRIN. [Concomitant]
     Active Substance: ASPIRIN
  8. METFORMIN [Concomitant]
     Active Substance: METFORMIN HYDROCHLORIDE
  9. LANTUS [Concomitant]
     Active Substance: INSULIN GLARGINE
  10. ELIQUIS [Concomitant]
     Active Substance: APIXABAN
  11. IMBRUVICA [Suspect]
     Active Substance: IBRUTINIB
     Indication: PRODUCT USED FOR UNKNOWN INDICATION
     Route: 048
     Dates: start: 20170220
  12. TOCOPHEROL [Concomitant]
     Active Substance: TOCOPHEROL
  13. LASIX [Concomitant]
     Active Substance: FUROSEMIDE
  14. METOPROLOL TARTRATE. [Concomitant]
     Active Substance: METOPROLOL TARTRATE
  15. OXYBUTYNIN. [Concomitant]
     Active Substance: OXYBUTYNIN CHLORIDE
  16. SPIRONOLACTONE. [Concomitant]
     Active Substance: SPIRONOLACTONE
  17. LISINOPRIL. [Concomitant]
     Active Substance: LISINOPRIL
  18. COUMADIN [Concomitant]
     Active Substance: WARFARIN SODIUM
  19. SIMVASTATIN. [Concomitant]

REACTIONS (1)
  - Weight decreased [Unknown]
